FAERS Safety Report 10993560 (Version 1)
Quarter: 2015Q2

REPORT INFORMATION
  Report Type: Spontaneous
  Country: US (occurrence: None)
  Receive Date: 20150406
  Receipt Date: 20150406
  Transmission Date: 20150821
  Serious: Yes (Other)
  Sender: FDA-Public Use
  Company Number: None

PATIENT
  Age: 85 Year
  Sex: Female

DRUGS (1)
  1. ENBREL [Suspect]
     Active Substance: ETANERCEPT
     Dosage: STRENGTH: 50, DOSE FORM:  INJECTABLE, FREQUENCY: 50, ROUTE:  SUBCUTANEOUS 057
     Route: 058
     Dates: start: 20150205, end: 20150326

REACTIONS (3)
  - Gastric disorder [None]
  - Abdominal pain upper [None]
  - Diarrhoea [None]

NARRATIVE: CASE EVENT DATE: 20150326
